FAERS Safety Report 11633016 (Version 1)
Quarter: 2015Q4

REPORT INFORMATION
  Report Type: Spontaneous
  Country: US (occurrence: None)
  Receive Date: 20151014
  Receipt Date: 20151014
  Transmission Date: 20160304
  Serious: Yes (Other)
  Sender: FDA-Public Use
  Company Number: None

PATIENT
  Sex: Male
  Weight: 92.99 kg

DRUGS (3)
  1. QUETIAPINE [Concomitant]
     Active Substance: QUETIAPINE
  2. SERTRALINE [Concomitant]
     Active Substance: SERTRALINE HYDROCHLORIDE
  3. QUETIAPINE [Suspect]
     Active Substance: QUETIAPINE
     Indication: DRUG THERAPY
     Dosage: 2
     Route: 048

REACTIONS (7)
  - Head discomfort [None]
  - Product substitution issue [None]
  - Fatigue [None]
  - Activities of daily living impaired [None]
  - Chest discomfort [None]
  - Dyspnoea [None]
  - Muscle twitching [None]
